FAERS Safety Report 5169782-8 (Version None)
Quarter: 2006Q4

REPORT INFORMATION
  Report Type: 
  Country: None (occurrence: None)
  Receive Date: 20061212
  Receipt Date: 20061201
  Transmission Date: 20070319
  Serious: Yes (Other)
  Sender: FDA-Public Use
  Company Number: GB-JNJFOC-20061201388

PATIENT
  Age: 45 Year
  Sex: Female

DRUGS (3)
  1. NORGESTIMATE AND ETHINYL ESTRADIOL [Suspect]
     Indication: DRUG USE FOR UNKNOWN INDICATION
     Dosage: FOR 3 MONTHS
     Route: 048
  2. LEVOTHYROXINE SODIUM [Concomitant]
     Indication: THYROID DISORDER
     Route: 065
  3. DOSULEPIN [Concomitant]
     Indication: DEPRESSION
     Route: 065

REACTIONS (8)
  - ANXIETY [None]
  - BLOOD FOLLICLE STIMULATING HORMONE INCREASED [None]
  - BLOOD PROLACTIN INCREASED [None]
  - MOOD SWINGS [None]
  - MUSCULAR WEAKNESS [None]
  - PARANOIA [None]
  - THYROXINE ABNORMAL [None]
  - WEIGHT INCREASED [None]
